FAERS Safety Report 18703241 (Version 1)
Quarter: 2021Q1

REPORT INFORMATION
  Report Type: Spontaneous
  Country: GB (occurrence: GB)
  Receive Date: 20210105
  Receipt Date: 20210105
  Transmission Date: 20210419
  Serious: Yes (Other)
  Sender: FDA-Public Use
  Company Number: GB-TEVA-2020-GB-1865674

PATIENT
  Age: 89 Year
  Sex: Female
  Weight: 63.29 kg

DRUGS (11)
  1. MACROGOL [Concomitant]
     Active Substance: POLYETHYLENE GLYCOLS
  2. KETOPROFEN. [Concomitant]
     Active Substance: KETOPROFEN
  3. RIVASTIGMINE. [Concomitant]
     Active Substance: RIVASTIGMINE
  4. CHLORPHENAMINE [Concomitant]
     Active Substance: CHLORPHENIRAMINE MALEATE
  5. LISINOPRIL. [Concomitant]
     Active Substance: LISINOPRIL
  6. CLOBETASONE [Concomitant]
     Active Substance: CLOBETASONE
  7. BISOPROLOL [Concomitant]
     Active Substance: BISOPROLOL
  8. AFLIBERCEPT [Concomitant]
     Active Substance: AFLIBERCEPT
  9. ARIPIPRAZOLE. [Suspect]
     Active Substance: ARIPIPRAZOLE
     Indication: ACUTE PSYCHOSIS
     Dosage: 5 MG
     Route: 048
     Dates: start: 20201106, end: 20201207
  10. LORAZEPAM. [Concomitant]
     Active Substance: LORAZEPAM
  11. PARACETAMOL [Concomitant]
     Active Substance: ACETAMINOPHEN

REACTIONS (3)
  - Lymphocyte count decreased [Not Recovered/Not Resolved]
  - Neutropenia [Not Recovered/Not Resolved]
  - White blood cell count decreased [Not Recovered/Not Resolved]

NARRATIVE: CASE EVENT DATE: 20201203
